FAERS Safety Report 5019664-7 (Version None)
Quarter: 2006Q2

REPORT INFORMATION
  Report Type: 
  Country: None (occurrence: None)
  Receive Date: 20060601
  Receipt Date: 20060428
  Transmission Date: 20061013
  Serious: Yes (Hospitalization)
  Sender: FDA-Public Use
  Company Number: 2006058805

PATIENT
  Age: 38 Year
  Sex: Female
  Weight: 54.4316 kg

DRUGS (1)
  1. CELEBREX [Suspect]
     Indication: ARTHRALGIA
     Dosage: UNKNOWN
     Route: 065

REACTIONS (4)
  - ARTHRITIS [None]
  - COLITIS [None]
  - MYOCARDIAL INFARCTION [None]
  - STENT PLACEMENT [None]
